FAERS Safety Report 6073188-7 (Version None)
Quarter: 2009Q1

REPORT INFORMATION
  Report Type: 
  Country: None (occurrence: None)
  Receive Date: 20090205
  Receipt Date: 20090121
  Transmission Date: 20090719
  Serious: Yes (Life-Threatening, Hospitalization)
  Sender: FDA-Public Use
  Company Number: 2008DE004340

PATIENT
  Age: 59 Year
  Sex: Female
  Weight: 74 kg

DRUGS (3)
  1. ALOXI [Suspect]
     Indication: PROPHYLAXIS OF NAUSEA AND VOMITING
     Dosage: 0.25MG, SINGLE, INTRAVENOUS
     Route: 042
     Dates: start: 20081022, end: 20081022
  2. DEXAMETHASON (DEDAMETHASONE) [Concomitant]
  3. TAVEGYL (CLEMASTINE) [Concomitant]

REACTIONS (13)
  - ANAPHYLACTIC SHOCK [None]
  - ASPARTATE AMINOTRANSFERASE INCREASED [None]
  - BLOOD ALKALINE PHOSPHATASE INCREASED [None]
  - BLOOD GLUCOSE INCREASED [None]
  - CYANOSIS [None]
  - GAMMA-GLUTAMYLTRANSFERASE INCREASED [None]
  - HAEMATOCRIT INCREASED [None]
  - HAEMOGLOBIN INCREASED [None]
  - HYPERSENSITIVITY [None]
  - HYPOTHYROIDISM [None]
  - LIP OEDEMA [None]
  - RESPIRATORY ARREST [None]
  - TONGUE OEDEMA [None]
